FAERS Safety Report 18478361 (Version 1)
Quarter: 2020Q4

REPORT INFORMATION
  Report Type: Spontaneous
  Country: IR (occurrence: IR)
  Receive Date: 20201109
  Receipt Date: 20201109
  Transmission Date: 20210114
  Serious: Yes (Other)
  Sender: FDA-Public Use
  Company Number: IR-JIANGSU HENGRUI MEDICINE CO., LTD.-2093700

PATIENT
  Age: 45 Year
  Sex: Female

DRUGS (1)
  1. LETROZOLE TABLETS USP, 2.5?MG [Suspect]
     Active Substance: LETROZOLE
     Indication: BREAST CANCER

REACTIONS (1)
  - Hypersensitivity vasculitis [Recovering/Resolving]
